FAERS Safety Report 25752029 (Version 4)
Quarter: 2025Q4

REPORT INFORMATION
  Report Type: Spontaneous
  Country: EU (occurrence: EU)
  Receive Date: 20250902
  Receipt Date: 20251110
  Transmission Date: 20260117
  Serious: Yes (Death, Life-Threatening, Hospitalization)
  Sender: PFIZER
  Company Number: EU-MLMSERVICE-20250822-PI621027-00270-1

PATIENT
  Age: 80 Year
  Sex: Male

DRUGS (2)
  1. METHYLPREDNISOLONE SODIUM SUCCINATE [Suspect]
     Active Substance: METHYLPREDNISOLONE SODIUM SUCCINATE
     Indication: Autoimmune disorder
     Dosage: 1000 MG, PULSES
  2. HUMAN IMMUNOGLOBULIN G [Suspect]
     Active Substance: HUMAN IMMUNOGLOBULIN G
     Indication: Autoimmune disorder
     Dosage: UNK
     Route: 042

REACTIONS (3)
  - Disseminated cryptococcosis [Fatal]
  - Uveitis [Fatal]
  - Condition aggravated [Fatal]
